FAERS Safety Report 9600802 (Version 1)
Quarter: 2013Q4

REPORT INFORMATION
  Report Type: Spontaneous
  Country: US (occurrence: US)
  Receive Date: 20131004
  Receipt Date: 20131004
  Transmission Date: 20140711
  Serious: No
  Sender: FDA-Public Use
  Company Number: US-AMGEN-USASP2013037606

PATIENT
  Age: 69 Year
  Sex: Female
  Weight: 72.56 kg

DRUGS (9)
  1. ENBREL [Suspect]
     Indication: PRODUCT USED FOR UNKNOWN INDICATION
     Dosage: 50 MG, QWK
     Route: 058
  2. DIOVAN HCT [Concomitant]
     Dosage: 160-12.5
  3. GABAPENTIN [Concomitant]
     Dosage: 300 MG, UNK
  4. LEFLUNOMIDE [Concomitant]
     Dosage: 10 MG, UNK
  5. LEVOTHYROXIN [Concomitant]
     Dosage: 100 MUG, UNK
  6. OMEPRAZOLE [Concomitant]
     Dosage: 20 MG, UNK
  7. OXCARBAZEPIN 1A PHARMA [Concomitant]
     Dosage: 150 MG, UNK
  8. TRIAMTERENE/HCTZ [Concomitant]
     Dosage: 37.5-25
  9. VENLAFAXINE [Concomitant]
     Dosage: 100 MG, UNK

REACTIONS (1)
  - Abdominal discomfort [Unknown]
